FAERS Safety Report 17907376 (Version 1)
Quarter: 2020Q2

REPORT INFORMATION
  Report Type: Spontaneous
  Country: CA (occurrence: CA)
  Receive Date: 20200617
  Receipt Date: 20200617
  Transmission Date: 20200714
  Serious: Yes (Life-Threatening, Hospitalization, Other)
  Sender: FDA-Public Use
  Company Number: CA-PFIZER INC-2020235243

PATIENT
  Age: 3 Year
  Sex: Male
  Weight: 13 kg

DRUGS (4)
  1. IBUPROFEN. [Concomitant]
     Active Substance: IBUPROFEN
     Dosage: UNK
  2. ACETAMINOPHEN. [Concomitant]
     Active Substance: ACETAMINOPHEN
     Dosage: UNK
  3. DIMENHYDRINATE. [Concomitant]
     Active Substance: DIMENHYDRINATE
     Dosage: UNK
  4. MORPHINE SULFATE. [Suspect]
     Active Substance: MORPHINE SULFATE
     Indication: PROCEDURAL PAIN
     Dosage: 1 DF, SINGLE
     Route: 042

REACTIONS (5)
  - Obstructive airways disorder [Recovered/Resolved]
  - Use of accessory respiratory muscles [Recovered/Resolved]
  - Respiratory distress [Recovered/Resolved]
  - Infantile apnoea [Recovered/Resolved]
  - Oxygen saturation decreased [Recovered/Resolved]
